FAERS Safety Report 9504778 (Version 1)
Quarter: 2013Q1

REPORT INFORMATION
  Report Type: Spontaneous
  Country: US (occurrence: None)
  Receive Date: 20130225
  Receipt Date: 20130225
  Transmission Date: 20140127
  Serious: Yes (Other)
  Sender: FDA-Public Use
  Company Number: 2012-284

PATIENT
  Sex: Male

DRUGS (2)
  1. PRIALT (ZICONOTIDE) INTRATHECAL INFUSION [Suspect]
     Indication: POST LAMINECTOMY SYNDROME
     Dosage: ONCE AN HOUR
     Route: 037
  2. PRIALT (ZICONOTIDE) INTRATHECAL INFUSION [Suspect]
     Indication: PAIN
     Dosage: ONCE AN HOUR
     Route: 037

REACTIONS (2)
  - Suicidal ideation [None]
  - Psychotic behaviour [None]
